FAERS Safety Report 9055157 (Version 1)
Quarter: 2013Q1

REPORT INFORMATION
  Report Type: Spontaneous
  Country: FR (occurrence: FR)
  Receive Date: 20130206
  Receipt Date: 20130206
  Transmission Date: 20140127
  Serious: Yes (Hospitalization)
  Sender: FDA-Public Use
  Company Number: FR-SANOFI-AVENTIS-2013SA007746

PATIENT
  Age: 86 Year
  Sex: Female

DRUGS (12)
  1. LOVENOX [Suspect]
     Indication: PRODUCT USED FOR UNKNOWN INDICATION
     Route: 058
     Dates: start: 20121015, end: 20121031
  2. PLAVIX [Suspect]
     Indication: PRODUCT USED FOR UNKNOWN INDICATION
     Route: 048
     Dates: end: 20121031
  3. VALSARTAN/HYDROCHLOROTHIAZIDE [Concomitant]
     Indication: HYPERTENSION
     Dosage: STRENGTH: 160/ 12.5 MG
     Route: 048
     Dates: end: 20121028
  4. ISOPTINE [Concomitant]
     Indication: HYPERTENSION
     Dosage: STRENGTH: 240 MG
     Route: 048
     Dates: end: 20121028
  5. LEVOTHYROX [Concomitant]
     Dosage: STRENGTH: 75 MCG
     Route: 048
  6. DISCOTRINE [Concomitant]
     Dosage: STRENGTH: 5 MG
     Route: 062
  7. TIAPRIDAL [Concomitant]
     Dosage: STRENGTH: 100 MG
  8. PULMICORT [Concomitant]
     Route: 055
  9. ATROVENT [Concomitant]
  10. LASILIX [Concomitant]
     Indication: HYPERTENSION
     Dosage: STRENGTH: 40 MG
     Route: 048
     Dates: start: 201210, end: 20121028
  11. DIFFU K [Concomitant]
     Dosage: STRENGTH: 600 MG
     Route: 048
     Dates: start: 201210
  12. CEFTRIAXONE [Concomitant]
     Indication: INFECTION
     Dates: start: 20121029

REACTIONS (3)
  - Gastric ulcer [Unknown]
  - Melaena [Recovered/Resolved]
  - Haemorrhagic anaemia [Recovered/Resolved]
